FAERS Safety Report 14544244 (Version 1)
Quarter: 2018Q1

REPORT INFORMATION
  Report Type: Spontaneous
  Country: US (occurrence: US)
  Receive Date: 20180215
  Receipt Date: 20180215
  Transmission Date: 20180509
  Serious: Yes (Hospitalization, Other)
  Sender: FDA-Public Use
  Company Number: None

PATIENT
  Age: 70 Year
  Sex: Male
  Weight: 69.81 kg

DRUGS (1)
  1. HYDRALAZINE [Suspect]
     Active Substance: HYDRALAZINE HYDROCHLORIDE
     Indication: HYPERTENSION
     Route: 048
     Dates: start: 20150716, end: 20180124

REACTIONS (8)
  - Haemoptysis [None]
  - Hypotension [None]
  - Acute kidney injury [None]
  - End stage renal disease [None]
  - Vasculitis [None]
  - Anaemia [None]
  - Pneumonia [None]
  - Nephritis [None]

NARRATIVE: CASE EVENT DATE: 20171227
